FAERS Safety Report 17703377 (Version 2)
Quarter: 2020Q2

REPORT INFORMATION
  Report Type: Spontaneous
  Country: FR (occurrence: FR)
  Receive Date: 20200423
  Receipt Date: 20200518
  Transmission Date: 20200714
  Serious: Yes (Other)
  Sender: FDA-Public Use
  Company Number: FR-AUROBINDO-AUR-APL-2020-019947

PATIENT
  Age: 25 Year
  Sex: Male

DRUGS (5)
  1. OXYBUTYNIN. [Concomitant]
     Active Substance: OXYBUTYNIN CHLORIDE
     Indication: PRODUCT USED FOR UNKNOWN INDICATION
     Dosage: UNK
     Route: 065
  2. HYDROXYZINE [Concomitant]
     Active Substance: HYDROXYZINE HYDROCHLORIDE
     Indication: PRODUCT USED FOR UNKNOWN INDICATION
     Dosage: UNK
     Route: 065
  3. LEVOFLOXACIN. [Suspect]
     Active Substance: LEVOFLOXACIN
     Indication: MENINGITIS
  4. LEVOFLOXACIN. [Suspect]
     Active Substance: LEVOFLOXACIN
     Indication: ARTHRODESIS
  5. LEVOFLOXACIN. [Suspect]
     Active Substance: LEVOFLOXACIN
     Indication: CEREBROSPINAL FLUID LEAKAGE
     Dosage: 750 MILLIGRAM, ONCE A DAY
     Route: 048

REACTIONS (8)
  - Neurotoxicity [Unknown]
  - Muscle spasms [Recovering/Resolving]
  - Muscle contractions involuntary [Recovering/Resolving]
  - Dysphagia [Recovering/Resolving]
  - Toxicity to various agents [Unknown]
  - Product use in unapproved indication [Unknown]
  - Cranial nerve injury [Unknown]
  - Hypercapnia [Recovering/Resolving]
